FAERS Safety Report 8875846 (Version 1)
Quarter: 2012Q4

REPORT INFORMATION
  Report Type: 
  Country: US (occurrence: US)
  Receive Date: 20121023
  Receipt Date: 20121023
  Transmission Date: 20130627
  Serious: Yes (Hospitalization, Other)
  Sender: FDA-Public Use
  Company Number: US-TEVA-365211USA

PATIENT
  Age: 43 Year
  Sex: Male

DRUGS (1)
  1. COPAXONE [Suspect]
     Indication: MULTIPLE SCLEROSIS
     Dates: start: 20110311, end: 20120906

REACTIONS (5)
  - Multiple sclerosis relapse [Recovering/Resolving]
  - Muscular weakness [Recovering/Resolving]
  - Muscular weakness [Recovering/Resolving]
  - Dysarthria [Recovering/Resolving]
  - Gait disturbance [Not Recovered/Not Resolved]
